FAERS Safety Report 5914383-4 (Version None)
Quarter: 2008Q4

REPORT INFORMATION
  Report Type: 
  Country: None (occurrence: None)
  Receive Date: 20081009
  Receipt Date: 20081003
  Transmission Date: 20090506
  Serious: Yes (Other)
  Sender: FDA-Public Use
  Company Number: US-GENENTECH-269300

PATIENT
  Age: 54 Year
  Sex: Female

DRUGS (4)
  1. TRASTUZUMAB [Suspect]
     Indication: BREAST CANCER
     Dosage: 4 MG/KG, SINGLE
     Dates: start: 20060113
  2. TRASTUZUMAB [Suspect]
     Dosage: 2 MG/KG, 1/WEEK
     Dates: end: 20060317
  3. TRASTUZUMAB [Suspect]
     Dosage: UNK
     Dates: start: 20060428
  4. PACLITAXEL [Concomitant]
     Indication: DRUG USE FOR UNKNOWN INDICATION
     Dosage: UNK
     Dates: start: 20060113

REACTIONS (3)
  - HEPATITIS [None]
  - HEPATOTOXICITY [None]
  - INFLAMMATION [None]
